FAERS Safety Report 7906553-0 (Version None)
Quarter: 2011Q4

REPORT INFORMATION
  Report Type: 
  Country: None (occurrence: None)
  Receive Date: 20111110
  Receipt Date: 20111104
  Transmission Date: 20120403
  Serious: No
  Sender: FDA-Public Use
  Company Number: JP-PFIZER INC-2011247154

PATIENT
  Age: 75 Year
  Sex: Female
  Weight: 46 kg

DRUGS (10)
  1. FUNGIZONE [Concomitant]
     Dosage: 30 MG, 1X/DAY
     Route: 041
     Dates: start: 20110810, end: 20110819
  2. DIFLUCAN [Suspect]
     Dosage: 800 MG/DAY
     Route: 048
     Dates: start: 20110901, end: 20111021
  3. ANCOTIL [Concomitant]
     Dosage: 4000 MG, DAILY
     Route: 048
     Dates: start: 20110901, end: 20110930
  4. ANCOTIL [Concomitant]
     Dosage: 300MG, 200MG AND 300MG DAILY
     Route: 048
     Dates: start: 20110823, end: 20110826
  5. DIFLUCAN [Suspect]
     Dosage: 400 MG, 1X/DAY
     Route: 048
     Dates: start: 20111027
  6. FUNGIZONE [Concomitant]
     Dosage: 20 MG, 1X/DAY
     Route: 041
     Dates: start: 20110809, end: 20110809
  7. DIFLUCAN [Suspect]
     Indication: MENINGITIS CRYPTOCOCCAL
     Dosage: 800 MG/ DAILY
     Route: 048
     Dates: start: 20110823, end: 20110826
  8. FLUCONAZOLE [Concomitant]
     Indication: MENINGITIS CRYPTOCOCCAL
     Dosage: 200 MG, 1X/DAY
     Route: 041
     Dates: start: 20110804, end: 20110809
  9. FUNGIZONE [Concomitant]
     Indication: MENINGITIS CRYPTOCOCCAL
     Dosage: 10 MG, 1X/DAY
     Route: 041
     Dates: start: 20110808, end: 20110808
  10. ANCOTIL [Concomitant]
     Indication: MENINGITIS CRYPTOCOCCAL
     Dosage: 1000 MG, 4X/DAY
     Route: 048
     Dates: start: 20110811, end: 20110819

REACTIONS (1)
  - CONDITION AGGRAVATED [None]
